FAERS Safety Report 5927768-7 (Version None)
Quarter: 2008Q4

REPORT INFORMATION
  Report Type: 
  Country: None (occurrence: None)
  Receive Date: 20081020
  Receipt Date: 20081009
  Transmission Date: 20090506
  Serious: Yes (Disabling, Other)
  Sender: FDA-Public Use
  Company Number: US--1167507

PATIENT
  Sex: Male

DRUGS (1)
  1. NEVANAC [Suspect]
     Indication: PHOTOREFRACTIVE KERATECTOMY
     Dosage: OPHTHALMIC
     Route: 047

REACTIONS (3)
  - ASTIGMATISM [None]
  - CORNEAL OPACITY [None]
  - IMPAIRED HEALING [None]
